FAERS Safety Report 23645089 (Version 1)
Quarter: 2024Q1

REPORT INFORMATION
  Report Type: Spontaneous
  Country: IT (occurrence: IT)
  Receive Date: 20240318
  Receipt Date: 20240318
  Transmission Date: 20240410
  Serious: Yes (Other)
  Sender: FDA-Public Use
  Company Number: IT-PFIZER INC-PV202400035283

PATIENT

DRUGS (5)
  1. HEPARIN SODIUM [Suspect]
     Active Substance: HEPARIN SODIUM
     Indication: Thrombosis prophylaxis
     Dosage: 4000 IU
     Route: 064
  2. METHYLPREDNISOLONE [Suspect]
     Active Substance: METHYLPREDNISOLONE
     Indication: Prophylaxis
     Dosage: 5 MG, DAILY
     Route: 064
  3. METHYLPREDNISOLONE [Suspect]
     Active Substance: METHYLPREDNISOLONE
     Indication: Pain
  4. ACETAMINOPHEN [Suspect]
     Active Substance: ACETAMINOPHEN
     Indication: Pain
     Dosage: UNK
     Route: 064
  5. BETAMETHASONE [Suspect]
     Active Substance: BETAMETHASONE\BETAMETHASONE DIPROPIONATE
     Indication: Prophylaxis
     Dosage: UNK
     Route: 064

REACTIONS (2)
  - Premature baby [Unknown]
  - Maternal exposure during pregnancy [Unknown]
